FAERS Safety Report 4791056-5 (Version None)
Quarter: 2005Q4

REPORT INFORMATION
  Report Type: 
  Country: None (occurrence: None)
  Receive Date: 20051005
  Receipt Date: 20050920
  Transmission Date: 20060501
  Serious: Yes (Disabling, Other)
  Sender: FDA-Public Use
  Company Number: USA0508104993

PATIENT
  Age: 43 Year
  Sex: Male
  Weight: 92 kg

DRUGS (1)
  1. STRATTERA [Suspect]
     Dosage: 10 MG

REACTIONS (13)
  - ADRENAL ADENOMA [None]
  - ADRENAL DISORDER [None]
  - ANXIETY [None]
  - BLOOD CATECHOLAMINES INCREASED [None]
  - BLOOD PRESSURE INCREASED [None]
  - CHEST DISCOMFORT [None]
  - ERYTHEMA [None]
  - IMPAIRED WORK ABILITY [None]
  - LABORATORY TEST ABNORMAL [None]
  - LIPIDS INCREASED [None]
  - NOREPINEPHRINE INCREASED [None]
  - PALLOR [None]
  - URINE ANALYSIS ABNORMAL [None]
